FAERS Safety Report 20756570 (Version 1)
Quarter: 2022Q2

REPORT INFORMATION
  Report Type: Spontaneous
  Country: IT (occurrence: IT)
  Receive Date: 20220427
  Receipt Date: 20220427
  Transmission Date: 20220721
  Serious: Yes (Death)
  Sender: FDA-Public Use
  Company Number: IT-BAYER-2022A059294

PATIENT
  Age: 54 Year
  Sex: Male

DRUGS (1)
  1. REGORAFENIB [Suspect]
     Active Substance: REGORAFENIB
     Indication: Neoplasm malignant
     Dosage: UNK, (CYCLES OF 21 DAYS WITH 7 DAY)
     Dates: start: 201807

REACTIONS (5)
  - Death [Fatal]
  - Palmar-plantar erythrodysaesthesia syndrome [None]
  - Oral disorder [None]
  - Condition aggravated [None]
  - Off label use [None]

NARRATIVE: CASE EVENT DATE: 20190101
